FAERS Safety Report 6559153-1 (Version None)
Quarter: 2010Q1

REPORT INFORMATION
  Report Type: 
  Country: None (occurrence: None)
  Receive Date: 20100129
  Receipt Date: 20100121
  Transmission Date: 20100710
  Serious: Yes (Hospitalization, Other)
  Sender: FDA-Public Use
  Company Number: CA-ABBOTT-09P-028-0613007-00

PATIENT
  Sex: Female
  Weight: 83.99 kg

DRUGS (15)
  1. HUMIRA [Suspect]
     Indication: CHOROIDITIS
     Route: 058
     Dates: start: 20060609
  2. SYNTHROID [Suspect]
  3. PREDNISONE [Concomitant]
     Indication: DRUG USE FOR UNKNOWN INDICATION
  4. CLONAZEPAM [Concomitant]
     Indication: DRUG USE FOR UNKNOWN INDICATION
  5. ESTRACE [Concomitant]
     Indication: DRUG USE FOR UNKNOWN INDICATION
  6. PROGESTERONE [Concomitant]
     Indication: DRUG USE FOR UNKNOWN INDICATION
  7. NORTRIPTYLINE HCL [Concomitant]
     Indication: DRUG USE FOR UNKNOWN INDICATION
     Dosage: 30-40 MG QD
  8. LEVOTHYROXINE SODIUM [Concomitant]
     Indication: DRUG USE FOR UNKNOWN INDICATION
  9. DEXEDRINE [Concomitant]
     Indication: DRUG USE FOR UNKNOWN INDICATION
  10. MORPHINE [Concomitant]
     Indication: DRUG USE FOR UNKNOWN INDICATION
     Dosage: 5-10 MG PRN
  11. CALCIUM [Concomitant]
     Indication: DRUG USE FOR UNKNOWN INDICATION
  12. ZOFRAN [Concomitant]
     Indication: NAUSEA
     Dosage: PRN
  13. ZOFRAN [Concomitant]
     Indication: MIGRAINE
  14. ZOFRAN [Concomitant]
     Indication: CRANIAL NERVE DISORDER
  15. GABAPENTIN [Concomitant]
     Indication: DRUG USE FOR UNKNOWN INDICATION

REACTIONS (25)
  - ARTHRALGIA [None]
  - BACK PAIN [None]
  - BLOOD MAGNESIUM DECREASED [None]
  - BLOOD POTASSIUM DECREASED [None]
  - CONNECTIVE TISSUE DISORDER [None]
  - CRANIAL NERVE DISORDER [None]
  - DECREASED APPETITE [None]
  - DIARRHOEA [None]
  - DRUG DETOXIFICATION [None]
  - EYE INFLAMMATION [None]
  - FIBROMYALGIA [None]
  - FOOT FRACTURE [None]
  - GLAUCOMA [None]
  - HYPERTHYROIDISM [None]
  - HYPOACUSIS [None]
  - INTERVERTEBRAL DISC PROTRUSION [None]
  - MACULAR DEGENERATION [None]
  - MIGRAINE [None]
  - MUSCULAR WEAKNESS [None]
  - NEURALGIA [None]
  - OPTIC NEURITIS [None]
  - PAIN IN EXTREMITY [None]
  - STRESS FRACTURE [None]
  - VOMITING [None]
  - WEIGHT INCREASED [None]
